FAERS Safety Report 13256471 (Version 1)
Quarter: 2017Q1

REPORT INFORMATION
  Report Type: Spontaneous
  Country: US (occurrence: US)
  Receive Date: 20170221
  Receipt Date: 20170221
  Transmission Date: 20170428
  Serious: Yes (Hospitalization)
  Sender: FDA-Public Use
  Company Number: None

PATIENT
  Sex: Female

DRUGS (1)
  1. SCOPOLAMINE [Suspect]
     Active Substance: SCOPOLAMINE

REACTIONS (4)
  - Hallucination [None]
  - Agitation [None]
  - Confusional state [None]
  - Wrong drug administered [None]

NARRATIVE: CASE EVENT DATE: 20151001
